FAERS Safety Report 7236569-1 (Version None)
Quarter: 2011Q1

REPORT INFORMATION
  Report Type: 
  Country: None (occurrence: None)
  Receive Date: 20110120
  Receipt Date: 20110110
  Transmission Date: 20110831
  Serious: No
  Sender: FDA-Public Use
  Company Number: US-B.I. PHARMACEUTICALS,INC./RIDGEFIELD-2011-BP-01082BP

PATIENT
  Age: 79 Year
  Sex: Female

DRUGS (7)
  1. NEXIUM [Concomitant]
     Indication: GASTROOESOPHAGEAL REFLUX DISEASE
  2. PRADAXA [Suspect]
     Indication: ATRIAL FIBRILLATION
     Dosage: 300 MG
     Route: 048
     Dates: start: 20110103
  3. UNKNOWN MEDICATION [Concomitant]
     Indication: HYPOTHYROIDISM
  4. SYNTHROID [Concomitant]
     Indication: HYPOTHYROIDISM
  5. LISINOPRIL [Concomitant]
     Indication: HYPERTENSION
  6. ATENOLOL [Concomitant]
     Indication: HYPERTENSION
  7. LEXAPRO [Concomitant]
     Indication: DEPRESSION

REACTIONS (2)
  - FALL [None]
  - MUSCULOSKELETAL CHEST PAIN [None]
